FAERS Safety Report 6707887-8 (Version None)
Quarter: 2010Q2

REPORT INFORMATION
  Report Type: 
  Country: None (occurrence: None)
  Receive Date: 20100503
  Receipt Date: 20090413
  Transmission Date: 20101027
  Serious: Yes (Hospitalization)
  Sender: FDA-Public Use
  Company Number: US-ASTRAZENECA-2009UW00961

PATIENT
  Age: 38 Year
  Sex: Female

DRUGS (4)
  1. NEXIUM [Suspect]
     Indication: GASTROOESOPHAGEAL REFLUX DISEASE
     Route: 048
  2. NEXIUM [Suspect]
     Route: 048
  3. NAPROXEN [Suspect]
     Indication: ANALGESIC INTERVENTION SUPPORTIVE THERAPY
  4. AMBIEN [Concomitant]

REACTIONS (2)
  - DYSGEUSIA [None]
  - GASTRITIS [None]
